FAERS Safety Report 6447819-3 (Version None)
Quarter: 2009Q4

REPORT INFORMATION
  Report Type: 
  Country: None (occurrence: None)
  Receive Date: 20091120
  Receipt Date: 20090831
  Transmission Date: 20100525
  Serious: No
  Sender: FDA-Public Use
  Company Number: A0805409A

PATIENT
  Age: 70 Year
  Sex: Male

DRUGS (3)
  1. VERAMYST [Suspect]
     Dosage: 1SPR TWICE PER DAY
     Route: 045
     Dates: start: 20090829, end: 20090830
  2. VALIUM [Concomitant]
  3. BLOOD PRESSURE MEDICATION [Concomitant]

REACTIONS (3)
  - ABNORMAL SENSATION IN EYE [None]
  - HEADACHE [None]
  - OROPHARYNGEAL PAIN [None]
